FAERS Safety Report 8676901 (Version 2)
Quarter: 2012Q4

REPORT INFORMATION
  Report Type: Spontaneous
  Country: US (occurrence: None)
  Receive Date: 20120705
  Receipt Date: 20120917
  Transmission Date: 20130627
  Serious: Yes (Other)
  Sender: FDA-Public Use
  Company Number: ACO_30900_2012

PATIENT
  Age: 63 Year
  Sex: Female
  Weight: 68.9 kg

DRUGS (9)
  1. AMPYRA [Suspect]
     Indication: GAIT DISTURBANCE
     Route: 048
     Dates: start: 201107
  2. BACLOFEN [Concomitant]
  3. OXYBUTYNIN [Concomitant]
  4. RITUXIMAB (RITUXIMAB) [Concomitant]
  5. CORTICOSTEROID NOS (CORTICOSTEROID NOS) [Concomitant]
  6. DIOVAN [Concomitant]
  7. AMLODIPINE BESYLATE [Concomitant]
  8. HYDROCHLOROTHIAZIDE [Concomitant]
  9. RITALIN [Concomitant]

REACTIONS (12)
  - Hypertension [None]
  - Pain [None]
  - Toothache [None]
  - Oedema peripheral [None]
  - Decreased appetite [None]
  - Weight decreased [None]
  - Eye disorder [None]
  - Pain in extremity [None]
  - Headache [None]
  - Nausea [None]
  - Back pain [None]
  - Joint swelling [None]
